FAERS Safety Report 6098810-0 (Version None)
Quarter: 2009Q1

REPORT INFORMATION
  Report Type: 
  Country: None (occurrence: None)
  Receive Date: 20090302
  Receipt Date: 20090223
  Transmission Date: 20090719
  Serious: Yes (Hospitalization, Congenital Anomaly)
  Sender: FDA-Public Use
  Company Number: A0644726A

PATIENT
  Sex: Female
  Weight: 2.6 kg

DRUGS (4)
  1. PAXIL [Suspect]
     Indication: ANXIETY
     Dosage: 20MG PER DAY
     Dates: start: 20010701, end: 20060501
  2. VITAMIN TAB [Concomitant]
  3. AMBIEN [Concomitant]
     Indication: INSOMNIA
     Dates: start: 20041001, end: 20050901
  4. PROPOXYPHENE NAPSYLATE AND ACETAMINOPHEN [Concomitant]
     Dates: start: 20050301

REACTIONS (12)
  - ATRIAL SEPTAL DEFECT [None]
  - CARDIAC MURMUR [None]
  - CLAVICLE FRACTURE [None]
  - CONGENITAL ANOMALY [None]
  - DEVELOPMENTAL DELAY [None]
  - DRUG EXPOSURE DURING PREGNANCY [None]
  - FEAR [None]
  - HYPOTONIA [None]
  - MUSCULAR WEAKNESS [None]
  - RIGHT VENTRICULAR HYPERTROPHY [None]
  - SMALL FOR DATES BABY [None]
  - WEIGHT GAIN POOR [None]
